FAERS Safety Report 10060817 (Version 1)
Quarter: 2014Q2

REPORT INFORMATION
  Report Type: Spontaneous
  Country: US (occurrence: US)
  Receive Date: 20140404
  Receipt Date: 20140404
  Transmission Date: 20141212
  Serious: Yes (Hospitalization, Other)
  Sender: FDA-Public Use
  Company Number: US-ABBVIE-14P-163-1219379-00

PATIENT
  Age: 63 Year
  Sex: Male
  Weight: 102.15 kg

DRUGS (15)
  1. GENGRAF [Suspect]
     Indication: FOCAL SEGMENTAL GLOMERULOSCLEROSIS
     Dates: start: 201305, end: 201403
  2. LISINOPRIL [Concomitant]
     Indication: HYPERTENSION
  3. CARDIZEM [Concomitant]
     Indication: HYPERTENSION
  4. ATENOLOL [Concomitant]
     Indication: HYPERTENSION
  5. LIPITOR [Concomitant]
     Indication: HYPERCHOLESTEROLAEMIA
  6. BABY ASPIRIN [Concomitant]
     Indication: PRODUCT USED FOR UNKNOWN INDICATION
  7. PREDNISONE [Concomitant]
     Indication: FOCAL SEGMENTAL GLOMERULOSCLEROSIS
  8. LEXAPRO [Concomitant]
     Indication: DEPRESSION
  9. WELLBUTRIN [Concomitant]
     Indication: DEPRESSION
  10. FISH OIL [Concomitant]
     Indication: SUPPLEMENTATION THERAPY
  11. MULTIVITAMIN [Concomitant]
     Indication: VITAMIN SUPPLEMENTATION
  12. VITAMIN B [Concomitant]
     Indication: VITAMIN SUPPLEMENTATION
  13. TUMS [Concomitant]
     Indication: MINERAL SUPPLEMENTATION
  14. MAGNESIUM [Concomitant]
     Indication: MINERAL SUPPLEMENTATION
  15. XANAX [Concomitant]
     Indication: PRODUCT USED FOR UNKNOWN INDICATION

REACTIONS (10)
  - Atrial fibrillation [Recovered/Resolved]
  - Pneumonia [Recovered/Resolved]
  - Sepsis [Recovered/Resolved]
  - Hypertension [Not Recovered/Not Resolved]
  - Oedema [Not Recovered/Not Resolved]
  - Diarrhoea [Recovering/Resolving]
  - Fatigue [Recovering/Resolving]
  - Depression [Not Recovered/Not Resolved]
  - Arthralgia [Not Recovered/Not Resolved]
  - Off label use [Not Recovered/Not Resolved]
